FAERS Safety Report 23166978 (Version 1)
Quarter: 2023Q4

REPORT INFORMATION
  Report Type: Report from Study
  Country: IT (occurrence: IT)
  Receive Date: 20231109
  Receipt Date: 20231109
  Transmission Date: 20240110
  Serious: Yes (Other)
  Sender: FDA-Public Use
  Company Number: IT-SUN PHARMACEUTICAL INDUSTRIES LTD-2023R1-416819

PATIENT
  Sex: Female

DRUGS (2)
  1. MEDROXYPROGESTERONE [Suspect]
     Active Substance: MEDROXYPROGESTERONE
     Indication: Secondary hypogonadism
     Dosage: 5 MILLIGRAM, DAILY
     Route: 048
  2. ESTRADIOL HEMIHYDRATE [Suspect]
     Active Substance: ESTRADIOL HEMIHYDRATE
     Indication: Secondary hypogonadism
     Dosage: UNK (50 PATCH)
     Route: 065

REACTIONS (2)
  - Glucose tolerance impaired [Unknown]
  - Impaired fasting glucose [Unknown]
